FAERS Safety Report 4662617-9 (Version None)
Quarter: 2005Q2

REPORT INFORMATION
  Report Type: 
  Country: None (occurrence: None)
  Receive Date: 20050513
  Receipt Date: 20050513
  Transmission Date: 20051028
  Serious: Yes (Other)
  Sender: FDA-Public Use
  Company Number: None

PATIENT
  Age: 55 Year
  Sex: Male
  Weight: 112 kg

DRUGS (1)
  1. PROPOFOL [Suspect]
     Dosage: TITRATION  CONTINUOUS  INTRAVENOUS
     Route: 042

REACTIONS (2)
  - CONVULSION [None]
  - INFUSION RELATED REACTION [None]
